FAERS Safety Report 8064154-0 (Version None)
Quarter: 2012Q1

REPORT INFORMATION
  Report Type: 
  Country: None (occurrence: None)
  Receive Date: 20120123
  Receipt Date: 20120118
  Transmission Date: 20120608
  Serious: Yes (Death)
  Sender: FDA-Public Use
  Company Number: JP-GLAXOSMITHKLINE-B0776485A

PATIENT
  Sex: Female

DRUGS (7)
  1. LAMICTAL [Suspect]
     Indication: BIPOLAR DISORDER
     Dosage: 25MG PER DAY
     Route: 048
     Dates: start: 20111006, end: 20111117
  2. VEGETAMIN A [Concomitant]
     Dosage: 2IUAX PER DAY
     Route: 048
     Dates: start: 20110225, end: 20120102
  3. LAMICTAL [Suspect]
     Dosage: 50MG PER DAY
     Route: 048
     Dates: start: 20111118, end: 20120102
  4. HIRNAMIN [Concomitant]
     Dosage: 100MG PER DAY
     Route: 048
     Dates: start: 20101101, end: 20120102
  5. DEPAS [Concomitant]
     Indication: BIPOLAR I DISORDER
     Dosage: 2MG PER DAY
     Route: 048
     Dates: start: 20110907, end: 20111215
  6. DEPAS [Concomitant]
     Dosage: 3MG PER DAY
     Route: 048
     Dates: start: 20111216, end: 20120102
  7. ROHYPNOL [Concomitant]
     Dosage: 4MG PER DAY
     Route: 048
     Dates: start: 20070823, end: 20120102

REACTIONS (5)
  - MYOCARDIAL INFARCTION [None]
  - RESPIRATORY ARREST [None]
  - SUDDEN DEATH [None]
  - SLEEP APNOEA SYNDROME [None]
  - DEPRESSED MOOD [None]
